FAERS Safety Report 23961566 (Version 1)
Quarter: 2024Q2

REPORT INFORMATION
  Report Type: Spontaneous
  Country: US (occurrence: US)
  Receive Date: 20240611
  Receipt Date: 20240611
  Transmission Date: 20240716
  Serious: Yes (Other)
  Sender: FDA-Public Use
  Company Number: US-SA-SAC20240607000038

PATIENT
  Sex: Female

DRUGS (20)
  1. AUBAGIO [Suspect]
     Active Substance: TERIFLUNOMIDE
     Indication: Multiple sclerosis
     Dosage: 7 MG, QD
     Route: 048
  2. COPAXONE [Suspect]
     Active Substance: GLATIRAMER ACETATE
  3. ONDANSETRON [Concomitant]
     Active Substance: ONDANSETRON
  4. PANTOPRAZOLE [Concomitant]
     Active Substance: PANTOPRAZOLE
  5. PROZAC [Concomitant]
     Active Substance: FLUOXETINE HYDROCHLORIDE
  6. QUETIAPINE [Concomitant]
     Active Substance: QUETIAPINE
  7. KESIMPTA [Concomitant]
     Active Substance: OFATUMUMAB
  8. TOPIRAMATE [Concomitant]
     Active Substance: TOPIRAMATE
  9. ZOLPIDEM TARTRATE [Concomitant]
     Active Substance: ZOLPIDEM TARTRATE
  10. VITAMIN D NOS [Concomitant]
     Active Substance: CHOLECALCIFEROL\ERGOCALCIFEROL
  11. HYDROXYZINE HYDROCHLORIDE [Concomitant]
     Active Substance: HYDROXYZINE HYDROCHLORIDE
  12. GABAPENTIN [Concomitant]
     Active Substance: GABAPENTIN
  13. BACLOFEN [Concomitant]
     Active Substance: BACLOFEN
  14. DIAZEPAM [Concomitant]
     Active Substance: DIAZEPAM
  15. DRONABINOL [Concomitant]
     Active Substance: DRONABINOL
     Dosage: 2010MGS
  16. LACTULOSE [Concomitant]
     Active Substance: LACTULOSE
  17. NUEDEXTA [Concomitant]
     Active Substance: DEXTROMETHORPHAN HYDROBROMIDE\QUINIDINE SULFATE
  18. SERTRALINE [Concomitant]
     Active Substance: SERTRALINE HYDROCHLORIDE
  19. SENSODYNE [SODIUM FLUORIDE] [Concomitant]
  20. ALLOPURINOL [Concomitant]
     Active Substance: ALLOPURINOL

REACTIONS (2)
  - Multiple sclerosis [Unknown]
  - Alopecia [Unknown]
